FAERS Safety Report 7615639-X (Version None)
Quarter: 2011Q3

REPORT INFORMATION
  Report Type: 
  Country: None (occurrence: None)
  Receive Date: 20110711
  Receipt Date: 20110613
  Transmission Date: 20111222
  Serious: Yes (Hospitalization)
  Sender: FDA-Public Use
  Company Number: 15233877

PATIENT
  Age: 82 Year
  Sex: Male

DRUGS (10)
  1. WARFARIN SODIUM [Suspect]
     Indication: THROMBOSIS PROPHYLAXIS
     Dosage: 3 MILLIGRAM, 1 DAY, ORAL
     Route: 048
     Dates: start: 20090120
  2. PREDNISONE [Concomitant]
  3. NEBIVOLOL HCL [Concomitant]
  4. PLACEBO [Suspect]
     Indication: THROMBOSIS PROPHYLAXIS
     Dosage: ORAL
     Route: 048
     Dates: start: 20090120
  5. LOSARTAN (LOSARTAN POTASSIUM) [Concomitant]
  6. LEVOTHYROXINE SODIUM [Concomitant]
  7. MEPREDNISONE [Concomitant]
  8. ACETYLCYSTEINE [Concomitant]
  9. IPRATROPIUM BROMIDE [Concomitant]
  10. TEOFILINA (THEOPHYLLINE) [Concomitant]

REACTIONS (3)
  - PNEUMONIA [None]
  - ATRIAL FIBRILLATION [None]
  - ANAEMIA [None]
